FAERS Safety Report 5205660-3 (Version None)
Quarter: 2007Q1

REPORT INFORMATION
  Report Type: 
  Country: None (occurrence: None)
  Receive Date: 20070105
  Receipt Date: 20070105
  Transmission Date: 20070707
  Serious: Yes (Hospitalization)
  Sender: FDA-Public Use
  Company Number: None

PATIENT
  Sex: Male

DRUGS (7)
  1. ASPIRIN [Suspect]
     Indication: HEADACHE
     Dosage: }6500 MG PO AT ONCE
     Route: 048
     Dates: start: 20060808
  2. ASPIRIN [Suspect]
     Indication: PAIN
     Dosage: }6500 MG PO AT ONCE
     Route: 048
     Dates: start: 20060808
  3. CARBAMAZEPINE [Concomitant]
  4. CLONAZEPAM [Concomitant]
  5. LEVETIRACEM [Concomitant]
  6. ZONISAMIDE [Concomitant]
  7. LAMOTRIGINE [Concomitant]

REACTIONS (6)
  - CONDITION AGGRAVATED [None]
  - CONVULSION [None]
  - HYPERHIDROSIS [None]
  - INCORRECT DOSE ADMINISTERED [None]
  - NAUSEA [None]
  - TREATMENT NONCOMPLIANCE [None]
